FAERS Safety Report 25616867 (Version 1)
Quarter: 2025Q3

REPORT INFORMATION
  Report Type: Spontaneous
  Country: US (occurrence: US)
  Receive Date: 20250729
  Receipt Date: 20250729
  Transmission Date: 20251021
  Serious: Yes (Hospitalization)
  Sender: STRIDES
  Company Number: US-STRIDES NORDIC APS-2025SP009374

PATIENT
  Age: 89 Year
  Sex: Female

DRUGS (3)
  1. COLCHICINE [Suspect]
     Active Substance: COLCHICINE
     Indication: Pericardial effusion
     Route: 065
  2. PREDNISONE [Suspect]
     Active Substance: PREDNISONE
     Indication: Pericardial effusion
     Route: 065
  3. METHYLPREDNISOLONE [Concomitant]
     Active Substance: METHYLPREDNISOLONE
     Indication: Pericarditis
     Route: 065

REACTIONS (2)
  - Eosinophilic pleural effusion [Recovering/Resolving]
  - Off label use [Unknown]
